FAERS Safety Report 12681170 (Version 1)
Quarter: 2016Q3

REPORT INFORMATION
  Report Type: Spontaneous
  Country: CO (occurrence: CO)
  Receive Date: 20160824
  Receipt Date: 20160824
  Transmission Date: 20161109
  Serious: Yes (Hospitalization)
  Sender: FDA-Public Use
  Company Number: PHHY2016CO115390

PATIENT
  Sex: Female

DRUGS (1)
  1. TOBI PODHALER [Suspect]
     Active Substance: TOBRAMYCIN
     Indication: BRONCHIECTASIS
     Dosage: 2 DF, BID (2 CAPSULES IN THE MORNING AND 2 CAPSULES AT NIGHT)
     Route: 065

REACTIONS (4)
  - Product use issue [Unknown]
  - Productive cough [Unknown]
  - Lung disorder [Unknown]
  - Haemoptysis [Unknown]
